FAERS Safety Report 25728536 (Version 1)
Quarter: 2025Q3

REPORT INFORMATION
  Report Type: Spontaneous
  Country: SA (occurrence: SA)
  Receive Date: 20250826
  Receipt Date: 20250826
  Transmission Date: 20251021
  Serious: Yes (Death)
  Sender: PFIZER
  Company Number: SA-PFIZER INC-PV202500102077

PATIENT
  Age: 27 Week
  Sex: Female

DRUGS (8)
  1. LINEZOLID [Suspect]
     Active Substance: LINEZOLID
     Indication: Staphylococcal infection
     Dosage: 10 MG/KG/DOSE IV EVERY 8 HOURS
     Route: 042
  2. LINEZOLID [Suspect]
     Active Substance: LINEZOLID
     Dosage: 10 MG/KG/DOSE IV EVERY 8 HOURS ON DOL 14
     Route: 042
  3. LINEZOLID [Suspect]
     Active Substance: LINEZOLID
     Dosage: 10 MG/KG/DOSE IV EVERY 8 HOURS ON DOL 37
     Route: 042
  4. MEROPENEM [Suspect]
     Active Substance: MEROPENEM
     Indication: Staphylococcal infection
     Dosage: 40 MG/KG/DOSE IV EVERY 8 HOURS
     Route: 042
  5. MEROPENEM [Suspect]
     Active Substance: MEROPENEM
     Dosage: 40 MG/KG/DOSE IV EVERY 8 HOURS
     Route: 042
  6. VANCOMYCIN [Suspect]
     Active Substance: VANCOMYCIN
     Indication: Staphylococcal infection
     Dosage: 15 MG/KG/DOSE EVERY 12 HOURS
  7. DAPTOMYCIN [Suspect]
     Active Substance: DAPTOMYCIN
     Indication: Staphylococcal infection
     Dosage: 10 MG/KG/DOSE IV EVERY 24 HOURS
     Route: 042
  8. RIFAMPIN [Suspect]
     Active Substance: RIFAMPIN
     Indication: Staphylococcal infection
     Dosage: 10 MG/KG/DOSE IV EVERY 12 HOURS
     Route: 042

REACTIONS (1)
  - Drug ineffective [Fatal]
